FAERS Safety Report 5626812-4 (Version None)
Quarter: 2008Q1

REPORT INFORMATION
  Report Type: 
  Country: None (occurrence: None)
  Receive Date: 20080212
  Receipt Date: 20080206
  Transmission Date: 20080703
  Serious: Yes (Other)
  Sender: FDA-Public Use
  Company Number: CHPA2008US02312

PATIENT
  Age: 46 Year
  Sex: Female

DRUGS (2)
  1. EXCEDRIN (MIGRAINE) [Suspect]
     Indication: MIGRAINE
     Dosage: 2 DF, ONCE/SINGLE, ORAL
     Route: 047
     Dates: start: 20071216, end: 20071216
  2. EXCEDRIN (MIGRAINE) [Suspect]
     Indication: MIGRAINE
     Dosage: 2 DF, ONCE/SINGLE, ORAL
     Route: 047
     Dates: start: 20080118, end: 20080118

REACTIONS (3)
  - AMENORRHOEA [None]
  - MENORRHAGIA [None]
  - THROMBOSIS [None]
